FAERS Safety Report 5128049-4 (Version None)
Quarter: 2006Q4

REPORT INFORMATION
  Report Type: 
  Country: None (occurrence: None)
  Receive Date: 20061010
  Receipt Date: 20060928
  Transmission Date: 20070319
  Serious: Yes (Other)
  Sender: FDA-Public Use
  Company Number: 2006117882

PATIENT
  Age: 45 Year
  Sex: Male

DRUGS (1)
  1. LIPITOR [Suspect]
     Dosage: 10 MG, ORAL
     Route: 048
     Dates: start: 20060501

REACTIONS (2)
  - BACK PAIN [None]
  - BLISTER [None]
